FAERS Safety Report 5836200-3 (Version None)
Quarter: 2008Q3

REPORT INFORMATION
  Report Type: 
  Country: None (occurrence: None)
  Receive Date: 20080805
  Receipt Date: 20080722
  Transmission Date: 20090109
  Serious: Yes (Hospitalization)
  Sender: FDA-Public Use
  Company Number: 440019M08USA

PATIENT
  Age: 52 Year
  Sex: Female
  Weight: 50.3493 kg

DRUGS (2)
  1. SEROSTIM [Suspect]
     Indication: CACHEXIA
     Dosage: NOT REPORTED, NOT REPORTED, NOT REPORTED
     Dates: start: 20080501, end: 20080501
  2. UNSPECIFIED HIV MEDICATIONS (ALL OTHER THERAPEUTIC PRODUCTS) [Concomitant]

REACTIONS (1)
  - RENAL FAILURE ACUTE [None]
